FAERS Safety Report 4994473-3 (Version None)
Quarter: 2006Q2

REPORT INFORMATION
  Report Type: 
  Country: None (occurrence: None)
  Receive Date: 20060505
  Receipt Date: 20050408
  Transmission Date: 20061013
  Serious: Yes (Hospitalization, Disabling)
  Sender: FDA-Public Use
  Company Number: US-MERCK-0504USA01664

PATIENT
  Age: 43 Year
  Sex: Female
  Weight: 75 kg

DRUGS (1)
  1. VIOXX [Suspect]
     Indication: FIBROMYALGIA
     Route: 048
     Dates: start: 19991001, end: 20030202

REACTIONS (10)
  - BRONCHIAL HYPERACTIVITY [None]
  - CEREBROVASCULAR ACCIDENT [None]
  - CONNECTIVE TISSUE DISORDER [None]
  - HYPERTRIGLYCERIDAEMIA [None]
  - HYSTERECTOMY [None]
  - IRRITABLE BOWEL SYNDROME [None]
  - ISCHAEMIC STROKE [None]
  - RECTAL HAEMORRHAGE [None]
  - ROTATOR CUFF SYNDROME [None]
  - UTERINE DISORDER [None]
